FAERS Safety Report 16192482 (Version 2)
Quarter: 2019Q2

REPORT INFORMATION
  Report Type: Spontaneous
  Country: US (occurrence: US)
  Receive Date: 20190412
  Receipt Date: 20190429
  Transmission Date: 20190711
  Serious: No
  Sender: FDA-Public Use
  Company Number: US-SA-2019SA099797

PATIENT
  Age: 61 Year
  Sex: Female
  Weight: 104.3 kg

DRUGS (25)
  1. ASPIRIN [ACETYLSALICYLIC ACID] [Concomitant]
     Active Substance: ASPIRIN
  2. MAGNESIUM [Concomitant]
     Active Substance: MAGNESIUM
  3. PERCOCET [Concomitant]
     Active Substance: ACETAMINOPHEN\OXYCODONE HYDROCHLORIDE
  4. FISH OIL 1-A-DAY + VITAMIN D3 [Concomitant]
  5. CALCIUM 500+D [Concomitant]
     Active Substance: CALCIUM\VITAMIN D
  6. VENTOLIN HFA [Concomitant]
     Active Substance: ALBUTEROL SULFATE
  7. IRON [Concomitant]
     Active Substance: IRON
  8. FLONASE [Concomitant]
     Active Substance: FLUTICASONE PROPIONATE
  9. BUDESONIDE. [Concomitant]
     Active Substance: BUDESONIDE
  10. NYSTATIN. [Concomitant]
     Active Substance: NYSTATIN
  11. ROBAXIN-750 [Concomitant]
  12. GLIPIZIDE. [Concomitant]
     Active Substance: GLIPIZIDE
  13. METFORMIN HYDROCHLORIDE. [Concomitant]
     Active Substance: METFORMIN HYDROCHLORIDE
  14. DUPIXENT [Suspect]
     Active Substance: DUPILUMAB
     Indication: ASTHMA
     Dosage: 300 MG, QOW
     Route: 058
     Dates: start: 20190301
  15. ALBUTEROL SULFATE. [Concomitant]
     Active Substance: ALBUTEROL SULFATE
  16. DICLOFENAC SODIUM. [Concomitant]
     Active Substance: DICLOFENAC SODIUM
  17. VITAMIN B12 [Concomitant]
     Active Substance: CYANOCOBALAMIN
  18. TRIAMTERENE HCTZ [Concomitant]
     Active Substance: HYDROCHLOROTHIAZIDE\TRIAMTERENE
  19. SINGULAIR [Concomitant]
     Active Substance: MONTELUKAST SODIUM
  20. VITAMIN D3 [Concomitant]
     Active Substance: CHOLECALCIFEROL
  21. LOSARTAN POTASSIUM. [Concomitant]
     Active Substance: LOSARTAN POTASSIUM
  22. LEXAPRO [Concomitant]
     Active Substance: ESCITALOPRAM OXALATE
  23. LYRICA [Concomitant]
     Active Substance: PREGABALIN
  24. PREDNISONE. [Concomitant]
     Active Substance: PREDNISONE
  25. PANTOPRAZOLE SODIUM. [Concomitant]
     Active Substance: PANTOPRAZOLE SODIUM

REACTIONS (1)
  - Product use issue [Recovered/Resolved]

NARRATIVE: CASE EVENT DATE: 20190401
